FAERS Safety Report 25241856 (Version 3)
Quarter: 2025Q2

REPORT INFORMATION
  Report Type: Spontaneous
  Country: ES (occurrence: ES)
  Receive Date: 20250426
  Receipt Date: 20250602
  Transmission Date: 20250717
  Serious: Yes (Other)
  Sender: CELLTRION
  Company Number: ES-ROCHE-10000109578

PATIENT

DRUGS (11)
  1. BEVACIZUMAB [Suspect]
     Active Substance: BEVACIZUMAB
     Indication: Hepatocellular carcinoma
     Route: 042
     Dates: start: 20240418
  2. ATEZOLIZUMAB [Suspect]
     Active Substance: ATEZOLIZUMAB
     Indication: Hepatocellular carcinoma
     Route: 042
     Dates: start: 20240418
  3. TIRAGOLUMAB [Suspect]
     Active Substance: TIRAGOLUMAB
     Indication: Hepatocellular carcinoma
     Route: 042
     Dates: start: 20240418
  4. MOMETASONE FUROATE [Concomitant]
     Active Substance: MOMETASONE FUROATE
     Indication: Psoriasis
     Route: 061
     Dates: start: 20240808
  5. IRON [Concomitant]
     Active Substance: IRON
     Indication: Iron deficiency
     Route: 048
     Dates: start: 20240821, end: 20240929
  6. FOLIC ACID [Concomitant]
     Active Substance: FOLIC ACID
     Indication: Thrombocytosis
     Route: 048
     Dates: start: 20240819
  7. OMEPRAZOLE [Concomitant]
     Active Substance: OMEPRAZOLE
     Route: 048
     Dates: start: 20241016, end: 20241113
  8. BETAMETHASONE [Concomitant]
     Active Substance: BETAMETHASONE
     Indication: Psoriasis
     Route: 061
     Dates: start: 20240808
  9. SALICYLIC ACID [Concomitant]
     Active Substance: SALICYLIC ACID
     Indication: Psoriasis
     Route: 061
     Dates: start: 20240808
  10. CLINDAMYCIN [Concomitant]
     Active Substance: CLINDAMYCIN
     Indication: Psoriasis
     Route: 061
     Dates: start: 20240808
  11. ACETAMINOPHEN [Concomitant]
     Active Substance: ACETAMINOPHEN
     Indication: Gingival bleeding
     Route: 042
     Dates: start: 20241017, end: 20241017

REACTIONS (2)
  - Autoimmune myositis [Recovered/Resolved]
  - Intentional product use issue [Unknown]

NARRATIVE: CASE EVENT DATE: 20241015
